FAERS Safety Report 16343259 (Version 1)
Quarter: 2019Q2

REPORT INFORMATION
  Report Type: Spontaneous
  Country: US (occurrence: US)
  Receive Date: 20190521
  Receipt Date: 20190521
  Transmission Date: 20190711
  Serious: No
  Sender: FDA-Public Use
  Company Number: None

PATIENT
  Age: 69 Year
  Sex: Female
  Weight: 99 kg

DRUGS (13)
  1. ROSUVASTATIN. [Concomitant]
     Active Substance: ROSUVASTATIN
  2. ALPRAZOLAM. [Concomitant]
     Active Substance: ALPRAZOLAM
  3. BUMETADINE [Concomitant]
     Active Substance: BUMETANIDE
  4. VITAMIN [Concomitant]
     Active Substance: VITAMINS
  5. CINNAMON. [Concomitant]
     Active Substance: CINNAMON
  6. OMEPRAZOLE. [Concomitant]
     Active Substance: OMEPRAZOLE
  7. CALCIUM [Concomitant]
     Active Substance: CALCIUM
  8. ATENOLOL. [Concomitant]
     Active Substance: ATENOLOL
  9. VITAMIN D [Concomitant]
     Active Substance: VITAMIN D NOS
  10. ASPIRIN. [Concomitant]
     Active Substance: ASPIRIN
  11. IRBESARTAN. [Concomitant]
     Active Substance: IRBESARTAN
  12. SYNTHROID [Concomitant]
     Active Substance: LEVOTHYROXINE SODIUM
  13. DOXAZOSIN MESYLATE. [Suspect]
     Active Substance: DOXAZOSIN MESYLATE
     Indication: BLOOD PRESSURE MEASUREMENT
     Dosage: ?          QUANTITY:1 TABLET(S);?
     Route: 048
     Dates: start: 20190225, end: 20190311

REACTIONS (1)
  - Diarrhoea [None]

NARRATIVE: CASE EVENT DATE: 20190225
